FAERS Safety Report 14244049 (Version 1)
Quarter: 2017Q4

REPORT INFORMATION
  Report Type: Report from Study
  Country: US (occurrence: US)
  Receive Date: 20171201
  Receipt Date: 20171201
  Transmission Date: 20180321
  Serious: Yes (Other)
  Sender: FDA-Public Use
  Company Number: US-EISAI MEDICAL RESEARCH-EC-2017-030089

PATIENT
  Sex: Female

DRUGS (4)
  1. LENVIMA [Suspect]
     Active Substance: LENVATINIB
     Indication: RENAL CANCER
     Route: 048
     Dates: start: 20170616, end: 201708
  2. LENVIMA [Suspect]
     Active Substance: LENVATINIB
     Route: 048
     Dates: start: 2017, end: 201711
  3. LENVIMA [Suspect]
     Active Substance: LENVATINIB
     Dosage: ^10 MG DAY 2, OFF ON DAY 3^
     Route: 048
     Dates: start: 201711
  4. AFINITOR [Concomitant]
     Active Substance: EVEROLIMUS

REACTIONS (3)
  - Delirium [Not Recovered/Not Resolved]
  - Failure to thrive [Not Recovered/Not Resolved]
  - Confusional state [Not Recovered/Not Resolved]

NARRATIVE: CASE EVENT DATE: 2017
